FAERS Safety Report 7028047-X (Version None)
Quarter: 2010Q4

REPORT INFORMATION
  Report Type: 
  Country: None (occurrence: None)
  Receive Date: 20101005
  Receipt Date: 20100928
  Transmission Date: 20110411
  Serious: Yes (Other)
  Sender: FDA-Public Use
  Company Number: US-ELI_LILLY_AND_COMPANY-US201008008031

PATIENT
  Sex: Female
  Weight: 127.44 kg

DRUGS (1)
  1. HUMALOG [Suspect]
     Indication: DIABETES MELLITUS INADEQUATE CONTROL
     Dosage: 30 U, 3/D
     Dates: start: 20080801

REACTIONS (2)
  - CARDIAC FAILURE CONGESTIVE [None]
  - TREATMENT NONCOMPLIANCE [None]
